FAERS Safety Report 12476833 (Version 1)
Quarter: 2016Q2

REPORT INFORMATION
  Report Type: Spontaneous
  Country: DK (occurrence: DK)
  Receive Date: 20160617
  Receipt Date: 20160617
  Transmission Date: 20160815
  Serious: Yes (Hospitalization)
  Sender: FDA-Public Use
  Company Number: DK-ACTAVIS-2016-12720

PATIENT
  Age: 53 Year
  Sex: Female
  Weight: 75 kg

DRUGS (13)
  1. FLUOROURACIL. [Suspect]
     Active Substance: FLUOROURACIL
     Indication: COLORECTAL CANCER METASTATIC
     Dosage: 156 MG, 1/TWO WEEKS; DATE OF MOSE RECENT DOSE PRIOR TO SAE: 29/OCT/2015, 09:28
     Route: 042
     Dates: start: 20151016
  2. CONTALGIN [Concomitant]
     Active Substance: MORPHINE SULFATE
     Indication: PRODUCT USED FOR UNKNOWN INDICATION
     Dosage: 15 MG, UNKNOWN
     Dates: start: 20150929
  3. DOLOPROCT                          /00951901/ [Concomitant]
     Indication: PRODUCT USED FOR UNKNOWN INDICATION
     Dosage: UNK
     Route: 065
  4. AVASTIN [Concomitant]
     Active Substance: BEVACIZUMAB
     Indication: COLORECTAL CANCER METASTATIC
     Dosage: 375 MG, 1/TWO WEEKS; DATE OF MOSE RECENT DOSE PRIOR TO SAE: 29/OCT/2015, 11:50
     Route: 042
     Dates: start: 20151030
  5. IMOLOPE [Concomitant]
     Indication: PROPHYLAXIS
     Dosage: UNK
     Route: 065
     Dates: start: 20151016, end: 20151029
  6. MOTILIUM [Concomitant]
     Active Substance: DOMPERIDONE
     Indication: PROPHYLAXIS
     Dosage: 20 MG, UNKNOWN
     Dates: start: 20151016
  7. OXALIPLATIN (UNKNOWN) [Suspect]
     Active Substance: OXALIPLATIN
     Indication: COLORECTAL CANCER METASTATIC
     Dosage: 156 MG, 1/TWO WEEKS; DATE OF MOSE RECENT DOSE PRIOR TO SAE: 29/OCT/2015, 09:28
     Route: 042
     Dates: start: 20151016
  8. PREDNISOLON                        /00016201/ [Concomitant]
     Active Substance: PREDNISOLONE
     Indication: PROPHYLAXIS
     Dosage: 50 MG, UNKNOWN
     Route: 065
     Dates: start: 20151016
  9. ALOXI [Concomitant]
     Active Substance: PALONOSETRON HYDROCHLORIDE
     Indication: PROPHYLAXIS
     Dosage: 50 MG, UNKNOWN
     Dates: start: 20151016
  10. MAGNESIUM [Concomitant]
     Active Substance: MAGNESIUM
     Indication: PROPHYLAXIS
     Dosage: 1000 MG, UNKNOWN
     Dates: start: 20151016
  11. TOILAX [Concomitant]
     Active Substance: BISACODYL
     Indication: PROPHYLAXIS
     Dosage: 5 MG, UNKNOWN
  12. XELODA [Suspect]
     Active Substance: CAPECITABINE
     Indication: COLORECTAL CANCER METASTATIC
     Dosage: 4416 MG, 1/TWO WEEKS; DATE OF LAST DOSE PRIOR TO SAE: 29/OCT/2015, 13:19
     Route: 065
  13. CALCIUM FOLINATE [Suspect]
     Active Substance: LEUCOVORIN CALCIUM
     Indication: COLORECTAL CANCER METASTATIC
     Dosage: 156 MG, 1/TWO WEEKS; DATE OF MOSE RECENT DOSE PRIOR TO SAE: 29/OCT/2015, 09:28
     Route: 042
     Dates: start: 20151016

REACTIONS (1)
  - Vomiting [Recovered/Resolved]

NARRATIVE: CASE EVENT DATE: 20151030
